FAERS Safety Report 6784752-1 (Version None)
Quarter: 2010Q2

REPORT INFORMATION
  Report Type: 
  Country: None (occurrence: None)
  Receive Date: 20100622
  Receipt Date: 20100608
  Transmission Date: 20101027
  Serious: Yes (Hospitalization, Other)
  Sender: FDA-Public Use
  Company Number: PHHY2010US38593

PATIENT
  Sex: Male
  Weight: 102 kg

DRUGS (11)
  1. GLEEVEC [Suspect]
     Indication: ACUTE LYMPHOCYTIC LEUKAEMIA
  2. CYCLOPHOSPHAMIDE [Concomitant]
     Dosage: UNK
     Dates: start: 20081225
  3. VINCRISTINE [Concomitant]
     Dosage: UNK
     Dates: start: 20081225
  4. DOXORUBICIN HCL [Concomitant]
     Dosage: UNK
     Dates: start: 20081225
  5. DEXAMETHASONE ACETATE [Concomitant]
     Dosage: UNK
     Dates: start: 20081225
  6. PROGRAF [Concomitant]
     Indication: IMMUNOSUPPRESSION
  7. METHOTREXATE [Concomitant]
     Indication: IMMUNOSUPPRESSION
  8. RADIATION THERAPY [Concomitant]
     Dosage: UNK
     Dates: start: 20090330
  9. RADIATION THERAPY [Concomitant]
     Dosage: UNK
     Dates: start: 20090403
  10. VP-16 [Concomitant]
     Dosage: UNK
     Dates: start: 20090330
  11. VP-16 [Concomitant]
     Dosage: UNK
     Dates: start: 20090408

REACTIONS (31)
  - ABDOMINAL PAIN [None]
  - BILE DUCT OBSTRUCTION [None]
  - BK VIRUS INFECTION [None]
  - CHOLECYSTECTOMY [None]
  - CHOLECYSTITIS ACUTE [None]
  - CHOLESTASIS [None]
  - CHOLESTATIC LIVER INJURY [None]
  - CLOSTRIDIUM DIFFICILE COLITIS [None]
  - CYSTITIS [None]
  - DEEP VEIN THROMBOSIS [None]
  - DELAYED ENGRAFTMENT [None]
  - DIARRHOEA [None]
  - DRY EYE [None]
  - DRY MOUTH [None]
  - FATIGUE [None]
  - GASTROINTESTINAL HAEMORRHAGE [None]
  - GRAFT VERSUS HOST DISEASE [None]
  - HAEMOLYTIC URAEMIC SYNDROME [None]
  - HUMAN HERPESVIRUS 6 INFECTION [None]
  - INFLUENZA [None]
  - LIVER FUNCTION TEST ABNORMAL [None]
  - OESOPHAGITIS [None]
  - OESOPHAGOGASTRODUODENOSCOPY [None]
  - RENAL FAILURE ACUTE [None]
  - RENAL IMPAIRMENT [None]
  - RESPIRATORY FAILURE [None]
  - SERUM FERRITIN INCREASED [None]
  - STEM CELL TRANSPLANT [None]
  - THROMBOTIC THROMBOCYTOPENIC PURPURA [None]
  - TRACHEOSTOMY [None]
  - VENA CAVA FILTER INSERTION [None]
